FAERS Safety Report 20775944 (Version 2)
Quarter: 2022Q4

REPORT INFORMATION
  Report Type: Spontaneous
  Country: US (occurrence: US)
  Receive Date: 20220502
  Receipt Date: 20221104
  Transmission Date: 20230113
  Serious: No
  Sender: FDA-Public Use
  Company Number: US-Accord-259003

PATIENT
  Age: 73 Year
  Sex: Male

DRUGS (1)
  1. FLUOROURACIL [Suspect]
     Active Substance: FLUOROURACIL
     Indication: Prophylaxis
     Dosage: STRENGTH: 5 PERCENT, 2 TIMES A DAY, MORNING AND EVENING

REACTIONS (1)
  - Vision blurred [Unknown]
